FAERS Safety Report 24680643 (Version 2)
Quarter: 2025Q1

REPORT INFORMATION
  Report Type: Spontaneous
  Country: DE (occurrence: DE)
  Receive Date: 20241129
  Receipt Date: 20250102
  Transmission Date: 20250408
  Serious: Yes (Other)
  Sender: MERCK
  Company Number: DE-009507513-2411DEU011824

PATIENT
  Sex: Male

DRUGS (2)
  1. PEMBROLIZUMAB [Suspect]
     Active Substance: PEMBROLIZUMAB
     Indication: Head and neck cancer
     Dosage: 200MG EVERY 4 WEEKS/6 CYCLES WERE COMPLETED
     Dates: start: 202403, end: 2024
  2. PEMBROLIZUMAB [Suspect]
     Active Substance: PEMBROLIZUMAB
     Dosage: 400MG EVERY 6 WEEKS
     Dates: start: 20240723

REACTIONS (9)
  - Gastrointestinal tube insertion [Unknown]
  - Haematuria [Unknown]
  - Urine abnormality [Unknown]
  - Ageusia [Unknown]
  - Sputum discoloured [Unknown]
  - Speech disorder [Unknown]
  - Dysphagia [Unknown]
  - Throat tightness [Unknown]
  - Inappropriate schedule of product administration [Unknown]

NARRATIVE: CASE EVENT DATE: 20240101
